FAERS Safety Report 8604617-X (Version None)
Quarter: 2012Q3

REPORT INFORMATION
  Report Type: 
  Country: None (occurrence: None)
  Receive Date: 20120820
  Receipt Date: 20120814
  Transmission Date: 20120928
  Serious: Yes (Hospitalization, Other)
  Sender: FDA-Public Use
  Company Number: PHEH2010US03872

PATIENT
  Sex: Male
  Weight: 88.435 kg

DRUGS (16)
  1. GABAPENTIN [Concomitant]
     Indication: HOT FLUSH
     Dosage: 100 MG, TID
  2. CIPROFLOXACIN [Concomitant]
     Dosage: 500 MG, UNK
  3. LEUPROLIDE ACETATE [Concomitant]
  4. LIPITOR [Concomitant]
  5. ZANTAC [Concomitant]
  6. ALBUTEROL [Concomitant]
  7. ASPIRIN [Concomitant]
     Dosage: 81 MG, QD
  8. RESTORIL [Concomitant]
  9. ZOMETA [Suspect]
     Route: 042
     Dates: end: 20091210
  10. CRESTOR [Concomitant]
     Indication: BLOOD CHOLESTEROL
     Dosage: 20 MG, QD
  11. EFFEXOR [Concomitant]
  12. PRILOSEC [Suspect]
     Indication: GASTROOESOPHAGEAL REFLUX DISEASE
  13. ASPIRIN [Concomitant]
  14. FLUTICASONE PROPIONATE [Concomitant]
  15. KETOCONAZOLE [Concomitant]
  16. AMBIEN [Concomitant]
     Dosage: 12.5 MG, PRN

REACTIONS (95)
  - ANHEDONIA [None]
  - DYSPNOEA EXERTIONAL [None]
  - COLONIC POLYP [None]
  - PERONEAL MUSCULAR ATROPHY [None]
  - HEPATITIS B [None]
  - UPPER RESPIRATORY TRACT INFECTION [None]
  - ARTERIOSCLEROSIS CORONARY ARTERY [None]
  - GINGIVAL ABSCESS [None]
  - PNEUMONIA [None]
  - HYPERLIPIDAEMIA [None]
  - BLADDER OUTLET OBSTRUCTION [None]
  - NEUROPATHY PERIPHERAL [None]
  - HIATUS HERNIA [None]
  - GENERAL PHYSICAL HEALTH DETERIORATION [None]
  - DIVERTICULITIS [None]
  - ASTHMA [None]
  - COLITIS [None]
  - HYPERKALAEMIA [None]
  - SPONDYLOLISTHESIS [None]
  - FALL [None]
  - RIB FRACTURE [None]
  - CELLULITIS [None]
  - HYPOTENSION [None]
  - DIZZINESS [None]
  - HOT FLUSH [None]
  - DYSPEPSIA [None]
  - DYSPHAGIA [None]
  - DIVERTICULUM INTESTINAL [None]
  - PHYSICAL DISABILITY [None]
  - ANXIETY [None]
  - FOOT DEFORMITY [None]
  - SKIN ULCER [None]
  - RETINOPATHY HYPERTENSIVE [None]
  - HAEMORRHOIDS [None]
  - BLINDNESS [None]
  - DIABETES MELLITUS [None]
  - HEPATITIS C [None]
  - BRONCHITIS [None]
  - TOOTH ABSCESS [None]
  - MONOCYTOSIS [None]
  - ANKLE FRACTURE [None]
  - CHEST PAIN [None]
  - INJURY [None]
  - PAIN [None]
  - CATARACT [None]
  - ANAL FISSURE [None]
  - INTERVERTEBRAL DISC PROTRUSION [None]
  - IMPAIRED HEALING [None]
  - DYSTROPHIC CALCIFICATION [None]
  - THROMBOCYTOPENIA [None]
  - ACQUIRED OESOPHAGEAL WEB [None]
  - AORTIC ANEURYSM [None]
  - RENAL FAILURE [None]
  - ANAEMIA [None]
  - VERTIGO [None]
  - CONTUSION [None]
  - JOINT DISLOCATION [None]
  - DIABETIC FOOT [None]
  - METASTASES TO BLADDER [None]
  - MALNUTRITION [None]
  - AORTIC ARTERIOSCLEROSIS [None]
  - HAEMATURIA [None]
  - DIARRHOEA [None]
  - EXCORIATION [None]
  - CHRONIC OBSTRUCTIVE PULMONARY DISEASE [None]
  - LOCALISED INFECTION [None]
  - METASTASES TO BONE [None]
  - LUNG NEOPLASM [None]
  - HEPATIC FAILURE [None]
  - PLEURAL EFFUSION [None]
  - CONFUSIONAL STATE [None]
  - NEUTROPENIA [None]
  - NEUTROPHILIA [None]
  - AORTIC DILATATION [None]
  - SPINAL OSTEOARTHRITIS [None]
  - DEAFNESS [None]
  - OSTEONECROSIS OF JAW [None]
  - ARTHRITIS [None]
  - PROSTATE CANCER METASTATIC [None]
  - OSTEOARTHRITIS [None]
  - B-CELL LYMPHOMA [None]
  - LEUKOCYTOSIS [None]
  - BLISTER [None]
  - POLLAKIURIA [None]
  - EXOSTOSIS [None]
  - LUMBAR SPINAL STENOSIS [None]
  - OSTEOMYELITIS [None]
  - BURSITIS [None]
  - OEDEMA PERIPHERAL [None]
  - INSOMNIA [None]
  - NEUROPATHIC ARTHROPATHY [None]
  - NOCTURIA [None]
  - RESPIRATORY FAILURE [None]
  - ABDOMINAL PAIN UPPER [None]
  - BACK PAIN [None]
